FAERS Safety Report 8478561-5 (Version None)
Quarter: 2012Q2

REPORT INFORMATION
  Report Type: 
  Country: None (occurrence: None)
  Receive Date: 20120629
  Receipt Date: 20120625
  Transmission Date: 20120825
  Serious: Yes (Hospitalization, Other)
  Sender: FDA-Public Use
  Company Number: US-TEVA-345612USA

PATIENT
  Age: 19 Month
  Sex: Female

DRUGS (4)
  1. NITROUS OXIDE [Suspect]
     Indication: INDUCTION OF ANAESTHESIA
  2. FENTANYL CITRATE [Suspect]
     Indication: MAINTENANCE OF ANAESTHESIA
     Dosage: INTERMITTENT
  3. ISOFLURANE [Suspect]
     Indication: MAINTENANCE OF ANAESTHESIA
  4. SEVOFLURANE [Suspect]
     Indication: INDUCTION OF ANAESTHESIA

REACTIONS (2)
  - OXYGEN SATURATION DECREASED [None]
  - RESPIRATORY DISTRESS [None]
